FAERS Safety Report 10179568 (Version 1)
Quarter: 2014Q2

REPORT INFORMATION
  Report Type: Spontaneous
  Country: DE (occurrence: DE)
  Receive Date: 20140519
  Receipt Date: 20140519
  Transmission Date: 20141212
  Serious: Yes (Other)
  Sender: FDA-Public Use
  Company Number: DE-ACTAVIS-2014-09831

PATIENT
  Sex: Female

DRUGS (1)
  1. OXALIPLATIN (UNKNOWN) [Suspect]
     Indication: CHEMOTHERAPY
     Dosage: UNK UNK, UNKNOWN
     Route: 017

REACTIONS (2)
  - Injection site extravasation [Recovering/Resolving]
  - Injection site induration [Recovering/Resolving]
